FAERS Safety Report 6460625-9 (Version None)
Quarter: 2009Q4

REPORT INFORMATION
  Report Type: 
  Country: None (occurrence: None)
  Receive Date: 20091125
  Receipt Date: 20091125
  Transmission Date: 20100525
  Serious: No
  Sender: FDA-Public Use
  Company Number: None

PATIENT
  Sex: Female

DRUGS (1)
  1. SEPTOCAINE [Suspect]
     Dates: start: 20091116

REACTIONS (1)
  - LIP OEDEMA [None]
